FAERS Safety Report 20762277 (Version 2)
Quarter: 2022Q4

REPORT INFORMATION
  Report Type: Spontaneous
  Country: US (occurrence: US)
  Receive Date: 20220428
  Receipt Date: 20221114
  Transmission Date: 20230113
  Serious: Yes (Hospitalization)
  Sender: FDA-Public Use
  Company Number: US-MYLANLABS-2022M1030568

PATIENT
  Age: 45 Year
  Sex: Female

DRUGS (15)
  1. BACLOFEN [Suspect]
     Active Substance: BACLOFEN
     Indication: Central pain syndrome
     Dosage: UNK
     Route: 065
  2. NEURONTIN [Suspect]
     Active Substance: GABAPENTIN
     Indication: Central pain syndrome
     Dosage: UNK
     Route: 065
  3. LYRICA [Suspect]
     Active Substance: PREGABALIN
     Indication: Central pain syndrome
     Dosage: UNK
     Route: 065
  4. INDOCIN [Suspect]
     Active Substance: INDOMETHACIN
     Indication: Central pain syndrome
     Dosage: UNK
     Route: 065
  5. FLEXERIL [Suspect]
     Active Substance: CYCLOBENZAPRINE HYDROCHLORIDE
     Indication: Central pain syndrome
     Dosage: UNK
     Route: 065
  6. LAMICTAL [Suspect]
     Active Substance: LAMOTRIGINE
     Indication: Central pain syndrome
     Dosage: UNK
     Route: 065
  7. TRILEPTAL [Suspect]
     Active Substance: OXCARBAZEPINE
     Indication: Central pain syndrome
     Dosage: UNK
     Route: 065
  8. BOTOX [Suspect]
     Active Substance: ONABOTULINUMTOXINA
     Indication: Central pain syndrome
     Dosage: UNK
     Route: 065
  9. INDERAL [Suspect]
     Active Substance: PROPRANOLOL HYDROCHLORIDE
     Indication: Central pain syndrome
     Dosage: UNK
     Route: 065
  10. BUSPAR [Suspect]
     Active Substance: BUSPIRONE HYDROCHLORIDE
     Indication: Central pain syndrome
     Dosage: UNK
     Route: 065
  11. SEROQUEL [Suspect]
     Active Substance: QUETIAPINE FUMARATE
     Indication: Central pain syndrome
     Dosage: UNK
     Route: 065
  12. HYDROXYZINE [Suspect]
     Active Substance: HYDROXYZINE HYDROCHLORIDE
     Indication: Central pain syndrome
     Dosage: UNK
     Route: 065
  13. CANNABIS SATIVA SUBSP. INDICA TOP [Suspect]
     Active Substance: CANNABIS SATIVA SUBSP. INDICA TOP
     Indication: Central pain syndrome
     Dosage: UNK
     Route: 065
  14. AIMOVIG [Suspect]
     Active Substance: ERENUMAB-AOOE
     Indication: Central pain syndrome
     Dosage: UNK
     Route: 065
  15. UBRELVY [Suspect]
     Active Substance: UBROGEPANT
     Indication: Central pain syndrome
     Dosage: UNK
     Route: 065

REACTIONS (3)
  - Drug ineffective for unapproved indication [Unknown]
  - Off label use [Unknown]
  - Drug ineffective [Unknown]
